FAERS Safety Report 16891368 (Version 1)
Quarter: 2019Q4

REPORT INFORMATION
  Report Type: Spontaneous
  Country: GB (occurrence: GB)
  Receive Date: 20191007
  Receipt Date: 20191007
  Transmission Date: 20200122
  Serious: Yes (Other)
  Sender: FDA-Public Use
  Company Number: GB-MYLANLABS-2019M1092130

PATIENT
  Sex: Female

DRUGS (2)
  1. NEURONTIN [Interacting]
     Active Substance: GABAPENTIN
     Indication: PRODUCT USED FOR UNKNOWN INDICATION
     Dosage: 300 MILLIGRAM
     Dates: start: 200609
  2. CETIRIZINE [Suspect]
     Active Substance: CETIRIZINE HYDROCHLORIDE
     Indication: SEASONAL ALLERGY
     Dosage: UNK
     Dates: start: 2007, end: 2007

REACTIONS (3)
  - Cognitive disorder [Recovered/Resolved]
  - Drug interaction [Recovered/Resolved]
  - Amnesia [Recovered/Resolved]
